FAERS Safety Report 8189464-8 (Version None)
Quarter: 2012Q1

REPORT INFORMATION
  Report Type: 
  Country: None (occurrence: None)
  Receive Date: 20120307
  Receipt Date: 20120302
  Transmission Date: 20120608
  Serious: No
  Sender: FDA-Public Use
  Company Number: US-PFIZER INC-2012056972

PATIENT
  Age: 81 Year
  Sex: Male

DRUGS (1)
  1. NITROSTAT [Suspect]
     Indication: CHEST PAIN
     Dosage: UNK
     Route: 060
     Dates: start: 20120201

REACTIONS (1)
  - DRUG INEFFECTIVE [None]
